FAERS Safety Report 7055923-4 (Version None)
Quarter: 2010Q4

REPORT INFORMATION
  Report Type: 
  Country: None (occurrence: None)
  Receive Date: 20101021
  Receipt Date: 20101015
  Transmission Date: 20110411
  Serious: Yes (Death)
  Sender: FDA-Public Use
  Company Number: A0764397A

PATIENT
  Age: 68 Year
  Sex: Female
  Weight: 54.5 kg

DRUGS (2)
  1. AVANDIA [Suspect]
     Indication: TYPE 2 DIABETES MELLITUS
     Dosage: 4MG PER DAY
     Route: 048
     Dates: start: 20050621
  2. METFORMIN [Concomitant]
     Dates: start: 20050621

REACTIONS (5)
  - CARDIAC ARREST [None]
  - DEATH [None]
  - FLUID RETENTION [None]
  - HEART INJURY [None]
  - MYOCARDIAL INFARCTION [None]
